FAERS Safety Report 5351814-5 (Version None)
Quarter: 2007Q2

REPORT INFORMATION
  Report Type: 
  Country: None (occurrence: None)
  Receive Date: 20070521
  Receipt Date: 20070301
  Transmission Date: 20071010
  Serious: No
  Sender: FDA-Public Use
  Company Number: WAES 0703USA00565

PATIENT
  Age: 63 Year
  Sex: Female

DRUGS (4)
  1. TAB JANUVIA UNK [Suspect]
     Indication: DIABETES MELLITUS NON-INSULIN-DEPENDENT
     Dosage: 100 MG/DAILY/PO
     Route: 048
     Dates: start: 20061109, end: 20061115
  2. ALTOPREV [Concomitant]
  3. UNIVASC [Concomitant]
  4. ASPIRIN [Concomitant]

REACTIONS (1)
  - ORAL PAIN [None]
